FAERS Safety Report 8701630 (Version 2)
Quarter: 2012Q4

REPORT INFORMATION
  Report Type: 
  Country: US (occurrence: US)
  Receive Date: 20120803
  Receipt Date: 20121003
  Transmission Date: 20130627
  Serious: Yes (Other)
  Sender: FDA-Public Use
  Company Number: US-BIOGENIDEC-2010BI010353

PATIENT
  Sex: Female

DRUGS (2)
  1. AVONEX [Suspect]
     Indication: MULTIPLE SCLEROSIS
     Route: 030
     Dates: start: 20090320, end: 20091016
  2. KEPPRA [Concomitant]
     Indication: CONVULSION

REACTIONS (6)
  - Convulsion [Recovered/Resolved]
  - Asthma [Recovered/Resolved]
  - Memory impairment [Recovered/Resolved]
  - General symptom [Not Recovered/Not Resolved]
  - Drug ineffective [Unknown]
  - Depression [Recovered/Resolved]
